FAERS Safety Report 24053078 (Version 2)
Quarter: 2024Q3

REPORT INFORMATION
  Report Type: Spontaneous
  Country: PT (occurrence: PT)
  Receive Date: 20240705
  Receipt Date: 20240723
  Transmission Date: 20241017
  Serious: Yes (Hospitalization)
  Sender: TEVA
  Company Number: PT-TEVA-VS-3215306

PATIENT
  Age: 4 Decade
  Sex: Female

DRUGS (2)
  1. VINCRISTINE [Suspect]
     Active Substance: VINCRISTINE
     Indication: Ewing-like sarcoma
     Route: 065
  2. DOXORUBICIN [Suspect]
     Active Substance: DOXORUBICIN
     Indication: Ewing-like sarcoma
     Route: 065

REACTIONS (3)
  - Haematotoxicity [Recovered/Resolved]
  - Anaemia [Recovered/Resolved]
  - Thrombocytopenia [Recovered/Resolved]
